FAERS Safety Report 8455762-3 (Version None)
Quarter: 2012Q2

REPORT INFORMATION
  Report Type: 
  Country: None (occurrence: None)
  Receive Date: 20120621
  Receipt Date: 20120619
  Transmission Date: 20120825
  Serious: No
  Sender: FDA-Public Use
  Company Number: US-PFIZER INC-2012148350

PATIENT
  Sex: Female
  Weight: 61.224 kg

DRUGS (1)
  1. LYRICA [Suspect]
     Indication: BACK PAIN
     Dosage: 75 MG ONE CAPSULE IN THE MORNING, TWO AT NIGHT
     Route: 048
     Dates: start: 20120101

REACTIONS (1)
  - APHTHOUS STOMATITIS [None]
